FAERS Safety Report 9528073 (Version 1)
Quarter: 2013Q3

REPORT INFORMATION
  Report Type: Spontaneous
  Country: IL (occurrence: IL)
  Receive Date: 20130917
  Receipt Date: 20130917
  Transmission Date: 20140515
  Serious: Yes (Other)
  Sender: FDA-Public Use
  Company Number: IL-JNJFOC-20130905110

PATIENT
  Age: 32 Year
  Sex: Male

DRUGS (1)
  1. STELARA [Suspect]
     Indication: PSORIATIC ARTHROPATHY
     Route: 058

REACTIONS (2)
  - Hepatic enzyme increased [Unknown]
  - Hepatic steatosis [Unknown]
